FAERS Safety Report 8500594-0 (Version None)
Quarter: 2012Q3

REPORT INFORMATION
  Report Type: 
  Country: None (occurrence: None)
  Receive Date: 20120710
  Receipt Date: 20120704
  Transmission Date: 20120928
  Serious: Yes (Life-Threatening, Hospitalization)
  Sender: FDA-Public Use
  Company Number: FR-ROCHE-1081768

PATIENT
  Sex: Male
  Weight: 112.14 kg

DRUGS (1)
  1. RANIBIZUMAB [Suspect]
     Indication: DIABETIC RETINAL OEDEMA
     Route: 050
     Dates: start: 20111004, end: 20120403

REACTIONS (2)
  - MYOCARDIAL ISCHAEMIA [None]
  - ANGINA PECTORIS [None]
